FAERS Safety Report 13563724 (Version 1)
Quarter: 2017Q2

REPORT INFORMATION
  Report Type: Spontaneous
  Country: SE (occurrence: SE)
  Receive Date: 20170519
  Receipt Date: 20170519
  Transmission Date: 20170830
  Serious: Yes (Hospitalization, Other)
  Sender: FDA-Public Use
  Company Number: SE-ASTRAZENECA-2017SE51261

PATIENT
  Age: 54 Year
  Sex: Male

DRUGS (9)
  1. FORXIGA [Suspect]
     Active Substance: DAPAGLIFLOZIN
     Indication: TYPE 2 DIABETES MELLITUS
     Route: 048
     Dates: start: 20170408
  2. LEVEMIR [Concomitant]
     Active Substance: INSULIN DETEMIR
     Dates: start: 2015
  3. AMLODIPINE [Concomitant]
     Active Substance: AMLODIPINE BESYLATE
     Dates: start: 2016
  4. CANDESARTAN. [Concomitant]
     Active Substance: CANDESARTAN
     Dates: start: 2015
  5. CITALOPRAM [Concomitant]
     Active Substance: CITALOPRAM HYDROBROMIDE
     Dates: start: 2013
  6. METFORMIN [Concomitant]
     Active Substance: METFORMIN HYDROCHLORIDE
     Dates: start: 2014
  7. ATORVASTATIN [Concomitant]
     Active Substance: ATORVASTATIN
     Dates: start: 2015
  8. MINDIAB [Concomitant]
     Active Substance: GLIPIZIDE
     Dates: start: 2015
  9. CIALIS [Concomitant]
     Active Substance: TADALAFIL
     Dates: start: 2014

REACTIONS (4)
  - Toe amputation [Recovered/Resolved with Sequelae]
  - Tenderness [Unknown]
  - Staphylococcus test positive [Unknown]
  - Local swelling [Unknown]

NARRATIVE: CASE EVENT DATE: 20170418
